FAERS Safety Report 25906838 (Version 1)
Quarter: 2025Q4

REPORT INFORMATION
  Report Type: Spontaneous
  Country: US (occurrence: US)
  Receive Date: 20251010
  Receipt Date: 20251010
  Transmission Date: 20260118
  Serious: No
  Sender: BAYER HEALTHCARE PHARMACEUTICALS INC.
  Company Number: US-BAYER-2025A130050

PATIENT
  Age: 40 Year
  Sex: Male

DRUGS (3)
  1. JIVI [Suspect]
     Active Substance: DAMOCTOCOG ALFA PEGOL
     Dosage: JIVI 2027 UNITS/4110 IU: INFUSE~6000 UNITS (+/-10%) UNITS
     Route: 042
  2. JIVI [Suspect]
     Active Substance: DAMOCTOCOG ALFA PEGOL
     Dosage: JIVI 2027 UNITS/4110 IU: INFUSE~6000 UNITS (+/-10%) UNITS
     Route: 042
     Dates: start: 20250922, end: 20250922
  3. JIVI [Suspect]
     Active Substance: DAMOCTOCOG ALFA PEGOL
     Dosage: JIVI 2027 UNITS/4110 IU: INFUSE~6000 UNITS (+/-10%) UNITS
     Route: 042
     Dates: start: 20250923, end: 20250923

REACTIONS (1)
  - Limb injury [None]

NARRATIVE: CASE EVENT DATE: 20250922
